FAERS Safety Report 7366326-7 (Version None)
Quarter: 2011Q1

REPORT INFORMATION
  Report Type: 
  Country: None (occurrence: None)
  Receive Date: 20110322
  Receipt Date: 20110308
  Transmission Date: 20110831
  Serious: Yes (Hospitalization)
  Sender: FDA-Public Use
  Company Number: US-JNJFOC-20060900972

PATIENT
  Sex: Female
  Weight: 40 kg

DRUGS (6)
  1. PREVACID [Concomitant]
  2. MESALAMINE [Concomitant]
  3. AZATHIOPRINE [Concomitant]
  4. INFLIXIMAB [Suspect]
     Dosage: TOTAL 24 DOSES
     Route: 042
  5. INFLIXIMAB [Suspect]
     Indication: CROHN'S DISEASE
     Route: 042
  6. CELEXA [Concomitant]

REACTIONS (1)
  - CROHN'S DISEASE [None]
